FAERS Safety Report 21075454 (Version 2)
Quarter: 2022Q3

REPORT INFORMATION
  Report Type: Spontaneous
  Country: US (occurrence: None)
  Receive Date: 20220713
  Receipt Date: 20220803
  Transmission Date: 20221026
  Serious: Yes (Other)
  Sender: FDA-Public Use
  Company Number: 2022A226611

PATIENT
  Age: 29603 Day
  Sex: Female
  Weight: 86.2 kg

DRUGS (2)
  1. BUDESONIDE\FORMOTEROL\GLYCOPYRRONIUM [Suspect]
     Active Substance: BUDESONIDE\FORMOTEROL\GLYCOPYRRONIUM
     Indication: Chronic obstructive pulmonary disease
     Dosage: 160/9/4.8MCG 2 PUFFS TWICE A DAY
     Route: 055
     Dates: start: 20220331
  2. SYMBICORT [Suspect]
     Active Substance: BUDESONIDE\FORMOTEROL FUMARATE DIHYDRATE
     Indication: Asthma
     Dosage: UNKNOWN
     Route: 055
     Dates: end: 20220331

REACTIONS (11)
  - Pericardial effusion [Unknown]
  - Atrial fibrillation [Unknown]
  - Dyspnoea [Unknown]
  - Dysphonia [Unknown]
  - Speech disorder [Unknown]
  - Sensation of foreign body [Unknown]
  - Throat clearing [Unknown]
  - Musculoskeletal discomfort [Unknown]
  - Product prescribing issue [Unknown]
  - Wrong technique in device usage process [Unknown]
  - Device delivery system issue [Unknown]

NARRATIVE: CASE EVENT DATE: 20220331
